FAERS Safety Report 5707483-5 (Version None)
Quarter: 2008Q2

REPORT INFORMATION
  Report Type: 
  Country: None (occurrence: None)
  Receive Date: 20080416
  Receipt Date: 20080407
  Transmission Date: 20081010
  Serious: Yes (Death)
  Sender: FDA-Public Use
  Company Number: AE-PFIZER INC-2008029918

PATIENT
  Age: 37 Year
  Sex: Male

DRUGS (2)
  1. CHAMPIX [Suspect]
     Indication: SMOKING CESSATION THERAPY
     Route: 048
  2. BETA BLOCKING AGENTS [Concomitant]
     Indication: HYPERTENSION
     Route: 048

REACTIONS (1)
  - DEATH [None]
